FAERS Safety Report 25222168 (Version 1)
Quarter: 2025Q2

REPORT INFORMATION
  Report Type: Spontaneous
  Country: US (occurrence: US)
  Receive Date: 20250421
  Receipt Date: 20250421
  Transmission Date: 20250717
  Serious: No
  Sender: TAKEDA
  Company Number: US-TAKEDA-2025TUS038305

PATIENT
  Sex: Female

DRUGS (1)
  1. HYQVIA [Suspect]
     Active Substance: HUMAN IMMUNOGLOBULIN G\HYALURONIDASE (HUMAN RECOMBINANT)
     Indication: Chronic inflammatory demyelinating polyradiculoneuropathy
     Dosage: UNK UNK, Q3WEEKS
     Dates: start: 2024

REACTIONS (1)
  - Dermatitis allergic [Recovered/Resolved]
